FAERS Safety Report 17150616 (Version 1)
Quarter: 2019Q4

REPORT INFORMATION
  Report Type: Spontaneous
  Country: US (occurrence: US)
  Receive Date: 20191213
  Receipt Date: 20191213
  Transmission Date: 20200122
  Serious: No
  Sender: FDA-Public Use
  Company Number: US-UCBSA-2015030861

PATIENT
  Age: 13 Year
  Sex: Female

DRUGS (5)
  1. FELBATOL [Concomitant]
     Active Substance: FELBAMATE
     Indication: SEIZURE
  2. VIMPAT [Suspect]
     Active Substance: LACOSAMIDE
     Indication: SEIZURE
     Dosage: UNKNOWN DOSE
  3. SABRILAN [Concomitant]
     Indication: SEIZURE
  4. CLONAZEPAM. [Concomitant]
     Active Substance: CLONAZEPAM
     Indication: SEIZURE
  5. VALIUM [Concomitant]
     Active Substance: DIAZEPAM
     Indication: SEIZURE

REACTIONS (3)
  - Sedation [Unknown]
  - Drug ineffective [Unknown]
  - Frustration tolerance decreased [Unknown]
